FAERS Safety Report 6038451-4 (Version None)
Quarter: 2009Q1

REPORT INFORMATION
  Report Type: 
  Country: None (occurrence: None)
  Receive Date: 20090115
  Receipt Date: 20090105
  Transmission Date: 20090719
  Serious: Yes (Other)
  Sender: FDA-Public Use
  Company Number: US-CELGENEUS-163-20785-08110840

PATIENT
  Sex: Female
  Weight: 90.54 kg

DRUGS (12)
  1. THALOMID [Suspect]
     Route: 048
     Dates: start: 20070302, end: 20081101
  2. THALOMID [Suspect]
     Route: 048
     Dates: start: 20070301, end: 20070301
  3. THALOMID [Suspect]
     Route: 048
     Dates: start: 20081101, end: 20081208
  4. ZOMETA [Concomitant]
     Route: 051
     Dates: start: 20070301
  5. DECADRON [Concomitant]
     Route: 048
     Dates: start: 20070222
  6. VELCADE [Concomitant]
     Route: 065
  7. CALCIUM [Concomitant]
     Indication: DRUG USE FOR UNKNOWN INDICATION
     Route: 048
  8. MULTI-VITAMINS [Concomitant]
     Indication: DRUG USE FOR UNKNOWN INDICATION
     Route: 048
  9. FEOSOL [Concomitant]
     Indication: DRUG USE FOR UNKNOWN INDICATION
     Route: 048
  10. COUMADIN [Concomitant]
     Indication: DRUG USE FOR UNKNOWN INDICATION
     Route: 048
  11. KLOR-CON [Concomitant]
     Indication: DRUG USE FOR UNKNOWN INDICATION
     Route: 048
     Dates: start: 20070222
  12. ATENOLOL [Concomitant]
     Indication: DRUG USE FOR UNKNOWN INDICATION
     Route: 048

REACTIONS (9)
  - ASTHENIA [None]
  - BLOOD COUNT ABNORMAL [None]
  - DEAFNESS [None]
  - FALL [None]
  - LOWER LIMB FRACTURE [None]
  - NEUTROPENIA [None]
  - OSTEOARTHRITIS [None]
  - PULMONARY EMBOLISM [None]
  - SYNOVIAL CYST [None]
